FAERS Safety Report 6543014-8 (Version None)
Quarter: 2010Q1

REPORT INFORMATION
  Report Type: 
  Country: None (occurrence: None)
  Receive Date: 20100120
  Receipt Date: 20100115
  Transmission Date: 20100710
  Serious: Yes (Other)
  Sender: FDA-Public Use
  Company Number: CA-ROCHE-679908

PATIENT
  Sex: Female

DRUGS (3)
  1. XELODA [Suspect]
     Route: 048
     Dates: start: 20091116, end: 20091203
  2. XELODA [Suspect]
     Route: 048
     Dates: start: 20091204, end: 20100114
  3. XELODA [Suspect]
     Route: 048
     Dates: start: 20100115

REACTIONS (2)
  - AMNESIA [None]
  - PALMAR-PLANTAR ERYTHRODYSAESTHESIA SYNDROME [None]
